FAERS Safety Report 9397366 (Version 1)
Quarter: 2013Q3

REPORT INFORMATION
  Report Type: Spontaneous
  Country: US (occurrence: None)
  Receive Date: 20130701
  Receipt Date: 20130701
  Transmission Date: 20140515
  Serious: Yes (Other)
  Sender: FDA-Public Use
  Company Number: 003-118

PATIENT
  Sex: Male

DRUGS (1)
  1. CROFLAB [Suspect]
     Indication: SNAKE BITE
     Dosage: 18 VIALS TOTAL
     Dates: start: 20130617, end: 20130618

REACTIONS (1)
  - Anaphylactic reaction [None]
